FAERS Safety Report 20964879 (Version 1)
Quarter: 2022Q2

REPORT INFORMATION
  Report Type: Spontaneous
  Country: PT (occurrence: PT)
  Receive Date: 20220616
  Receipt Date: 20220616
  Transmission Date: 20220721
  Serious: Yes (Hospitalization, Other)
  Sender: FDA-Public Use
  Company Number: PT-AUROBINDO-AUR-APL-2022-012023

PATIENT
  Age: 40 Year
  Sex: Female

DRUGS (1)
  1. TAMOXIFEN [Suspect]
     Active Substance: TAMOXIFEN
     Indication: Breast cancer
     Dosage: UNK
     Route: 065
     Dates: start: 201808

REACTIONS (21)
  - Anaphylactic reaction [Recovered/Resolved]
  - Angioedema [Recovered/Resolved]
  - Cutaneous vasculitis [Recovered/Resolved]
  - Nephrotic syndrome [Recovered/Resolved]
  - Renal impairment [Recovered/Resolved]
  - Hypertension [Recovered/Resolved]
  - Generalised oedema [Recovered/Resolved]
  - Asthenia [Recovered/Resolved]
  - Urticaria [Recovered/Resolved]
  - Pallor [Recovered/Resolved]
  - Anaemia [Recovered/Resolved]
  - Leukocyturia [Recovered/Resolved]
  - Haematuria [Recovered/Resolved]
  - Papule [Recovered/Resolved]
  - Skin lesion [Recovered/Resolved]
  - Skin plaque [Recovered/Resolved]
  - Urine abnormality [Recovered/Resolved]
  - Fatigue [Recovered/Resolved]
  - Proteinuria [Recovered/Resolved]
  - Red blood cell sedimentation rate increased [Recovered/Resolved]
  - Urticarial vasculitis [Recovered/Resolved]

NARRATIVE: CASE EVENT DATE: 20190201
